FAERS Safety Report 16865253 (Version 1)
Quarter: 2019Q3

REPORT INFORMATION
  Report Type: Report from Study
  Country: US (occurrence: US)
  Receive Date: 20190930
  Receipt Date: 20190930
  Transmission Date: 20191005
  Serious: Yes (Other)
  Sender: FDA-Public Use
  Company Number: US-SUN PHARMACEUTICAL INDUSTRIES LTD-2019R1-222178

PATIENT
  Age: 55 Year
  Sex: Female

DRUGS (1)
  1. TILDRAKIZUMAB [Suspect]
     Active Substance: TILDRAKIZUMAB
     Indication: PRODUCT USED FOR UNKNOWN INDICATION
     Dosage: UNK
     Route: 065
     Dates: start: 20190905

REACTIONS (5)
  - Throat irritation [Unknown]
  - Immune system disorder [Unknown]
  - Vaginal infection [Unknown]
  - Chest discomfort [Unknown]
  - Lip swelling [Unknown]

NARRATIVE: CASE EVENT DATE: 201909
